APPROVED DRUG PRODUCT: KETEK
Active Ingredient: TELITHROMYCIN
Strength: 300MG
Dosage Form/Route: TABLET;ORAL
Application: N021144 | Product #002
Applicant: SANOFI AVENTIS US LLC
Approved: Feb 9, 2005 | RLD: No | RS: No | Type: DISCN